FAERS Safety Report 8927478 (Version 1)
Quarter: 2012Q4

REPORT INFORMATION
  Report Type: 
  Country: GB (occurrence: GB)
  Receive Date: 20121127
  Receipt Date: 20121127
  Transmission Date: 20130627
  Serious: Yes (Hospitalization)
  Sender: FDA-Public Use
  Company Number: GB-WATSON-2012-20032

PATIENT
  Age: 60 Year
  Sex: Male
  Weight: 66 kg

DRUGS (21)
  1. TRAMADOL HYDROCHLORIDE [Suspect]
     Indication: BACK PAIN
     Dosage: 50 mg, q6h
     Route: 048
     Dates: end: 20080601
  2. PARACETAMOL [Concomitant]
     Indication: PRODUCT USED FOR UNKNOWN INDICATION
     Dosage: 500 mg, q6h
     Route: 048
  3. LANSOPRAZOLE [Concomitant]
     Indication: PRODUCT USED FOR UNKNOWN INDICATION
     Dosage: 30 mg, daily
     Route: 048
  4. ASPIRIN [Concomitant]
     Indication: PRODUCT USED FOR UNKNOWN INDICATION
     Dosage: 75 mg, UNK
     Route: 048
     Dates: start: 20061114
  5. SIMVASTATIN [Concomitant]
     Indication: PRODUCT USED FOR UNKNOWN INDICATION
     Dosage: 20 mg, daily
     Route: 048
     Dates: start: 20080226
  6. ALFUZOSIN [Concomitant]
     Indication: PRODUCT USED FOR UNKNOWN INDICATION
     Dosage: 10 mg, daily
     Route: 048
  7. ASCORBIC ACID [Concomitant]
     Indication: PRODUCT USED FOR UNKNOWN INDICATION
     Dosage: 50 mg, daily
     Route: 048
     Dates: start: 20061114
  8. IRBESARTAN [Concomitant]
     Indication: PRODUCT USED FOR UNKNOWN INDICATION
     Dosage: 150 mg, bid
     Route: 048
  9. LOPRAZOLAM [Concomitant]
     Indication: PRODUCT USED FOR UNKNOWN INDICATION
     Dosage: 1 mg, daily
     Route: 048
  10. TESTOSTERONE [Concomitant]
     Indication: PRODUCT USED FOR UNKNOWN INDICATION
     Dosage: 1 ml, as needed
     Route: 065
     Dates: start: 20080603
  11. LACTULOSE [Concomitant]
     Indication: PRODUCT USED FOR UNKNOWN INDICATION
     Dosage: 20 ml, bid
     Route: 048
     Dates: start: 20061027, end: 20061101
  12. MACROGOL [Concomitant]
     Indication: PRODUCT USED FOR UNKNOWN INDICATION
     Dosage: 2 DF, unknown
     Route: 048
     Dates: start: 20061027, end: 20061101
  13. FUROSEMIDE [Concomitant]
     Indication: PRODUCT USED FOR UNKNOWN INDICATION
     Dosage: 20 mg, daily
     Route: 048
     Dates: start: 20060911, end: 20070201
  14. SALMETEROL/FLUTICASONPROPIONAAT [Concomitant]
     Indication: PRODUCT USED FOR UNKNOWN INDICATION
     Dosage: 2 DF, bid
     Route: 055
  15. GAVISCON                           /00237601/ [Concomitant]
     Indication: PRODUCT USED FOR UNKNOWN INDICATION
     Dosage: as necessary
     Route: 065
  16. BALNEUM                            /00103901/ [Concomitant]
     Indication: PRODUCT USED FOR UNKNOWN INDICATION
     Dosage: UNK, unknown
     Route: 065
     Dates: start: 20061020
  17. TRIMOVATE                          /00456501/ [Concomitant]
     Indication: PRODUCT USED FOR UNKNOWN INDICATION
     Dosage: 3 DF, unknown
     Route: 061
     Dates: start: 20061020
  18. BETAMETHASONE [Concomitant]
     Indication: PRODUCT USED FOR UNKNOWN INDICATION
     Dosage: 1 DF, tid
     Route: 061
     Dates: start: 20061114
  19. SALBUTAMOL [Concomitant]
     Indication: PRODUCT USED FOR UNKNOWN INDICATION
     Dosage: UNK, unknown
     Route: 055
     Dates: start: 20070611
  20. DICLOFENAC [Concomitant]
     Indication: PRODUCT USED FOR UNKNOWN INDICATION
     Dosage: 50 mg, bid
     Route: 048
     Dates: start: 20070822, end: 20070901
  21. NAPROXEN [Concomitant]
     Indication: PRODUCT USED FOR UNKNOWN INDICATION
     Dosage: 375 mg, bid
     Route: 048
     Dates: start: 20080325

REACTIONS (13)
  - Chest pain [Unknown]
  - Asthma exercise induced [Not Recovered/Not Resolved]
  - Proctalgia [Unknown]
  - Cough [Unknown]
  - Fall [Unknown]
  - Inguinal hernia [Recovered/Resolved]
  - Otitis externa [Unknown]
  - Ear discomfort [Unknown]
  - Spinal osteoarthritis [Unknown]
  - Labyrinthitis [Unknown]
  - Bronchitis [Unknown]
  - Pruritus [Unknown]
  - Coordination abnormal [Unknown]
